FAERS Safety Report 6459455-3 (Version None)
Quarter: 2009Q4

REPORT INFORMATION
  Report Type: 
  Country: None (occurrence: None)
  Receive Date: 20091127
  Receipt Date: 20091117
  Transmission Date: 20100525
  Serious: Yes (Other)
  Sender: FDA-Public Use
  Company Number: GB-ELI_LILLY_AND_COMPANY-GB200911004669

PATIENT
  Age: 73 Year
  Sex: Female
  Weight: 115 kg

DRUGS (9)
  1. BYETTA [Suspect]
     Dosage: 5 UG, 2/D
     Route: 058
     Dates: start: 20081202, end: 20090310
  2. ASPIRIN [Concomitant]
     Dosage: UNK, UNKNOWN
     Route: 065
  3. ATORVASTATIN [Concomitant]
     Dosage: UNK, UNKNOWN
     Route: 065
  4. CO-DYDRAMOL [Concomitant]
     Dosage: UNK, UNKNOWN
     Route: 065
  5. FELODIPINE [Concomitant]
     Dosage: UNK, UNKNOWN
     Route: 065
  6. INDAPAMIDE [Concomitant]
     Dosage: UNK, UNKNOWN
     Route: 065
  7. LATANOPROST [Concomitant]
     Dosage: UNK, UNKNOWN
     Route: 065
  8. METFORMIN HCL [Concomitant]
     Dosage: UNK, UNKNOWN
     Route: 065
  9. PERINDOPRIL [Concomitant]
     Dosage: UNK, UNKNOWN
     Route: 065

REACTIONS (9)
  - BLOOD CREATININE INCREASED [None]
  - C-REACTIVE PROTEIN ABNORMAL [None]
  - GLOMERULAR FILTRATION RATE DECREASED [None]
  - HAEMOGLOBIN ABNORMAL [None]
  - MALAISE [None]
  - MYALGIA [None]
  - NAUSEA [None]
  - POLYMYALGIA RHEUMATICA [None]
  - RENAL IMPAIRMENT [None]
